FAERS Safety Report 7583558-3 (Version None)
Quarter: 2011Q2

REPORT INFORMATION
  Report Type: 
  Country: None (occurrence: None)
  Receive Date: 20110630
  Receipt Date: 20110621
  Transmission Date: 20111010
  Serious: Yes (Hospitalization)
  Sender: FDA-Public Use
  Company Number: AU-AMGEN-AUSSP2011020821

PATIENT
  Age: 65 Year
  Sex: Female

DRUGS (1)
  1. PROLIA [Suspect]
     Indication: PRODUCT USED FOR UNKNOWN INDICATION
     Dosage: UNK

REACTIONS (4)
  - CELLULITIS [None]
  - RASH [None]
  - HYPOCALCAEMIA [None]
  - VASCULITIS [None]
